FAERS Safety Report 17912502 (Version 1)
Quarter: 2020Q2

REPORT INFORMATION
  Report Type: Spontaneous
  Country: CA (occurrence: CA)
  Receive Date: 20200618
  Receipt Date: 20200618
  Transmission Date: 20200714
  Serious: Yes (Hospitalization, Other)
  Sender: FDA-Public Use
  Company Number: CA-PFIZER INC-2020235731

PATIENT
  Age: 34 Year
  Sex: Male

DRUGS (5)
  1. HUMIRA [Suspect]
     Active Substance: ADALIMUMAB
     Dosage: UNK
     Route: 058
  2. REMICADE [Suspect]
     Active Substance: INFLIXIMAB
     Dosage: UNK
     Route: 065
  3. MORPHINE SULFATE. [Suspect]
     Active Substance: MORPHINE SULFATE
     Indication: PAIN
     Dosage: UNK
     Route: 065
  4. PREDNISONE. [Concomitant]
     Active Substance: PREDNISONE
     Indication: COLITIS ULCERATIVE
     Dosage: 40 MG, 1X/DAY
  5. MORPHINE SULFATE. [Suspect]
     Active Substance: MORPHINE SULFATE
     Indication: COLITIS ULCERATIVE

REACTIONS (13)
  - Therapeutic product effect decreased [Unknown]
  - Drug ineffective [Unknown]
  - Bedridden [Unknown]
  - Asthenia [Unknown]
  - Colitis ulcerative [Unknown]
  - Haematochezia [Unknown]
  - Insomnia [Unknown]
  - Muscle spasms [Unknown]
  - Defaecation urgency [Unknown]
  - Frequent bowel movements [Unknown]
  - Weight decreased [Unknown]
  - Pain [Unknown]
  - Lethargy [Unknown]
